FAERS Safety Report 5178942-1 (Version None)
Quarter: 2006Q4

REPORT INFORMATION
  Report Type: 
  Country: None (occurrence: None)
  Receive Date: 20061219
  Receipt Date: 20061208
  Transmission Date: 20070319
  Serious: Yes (Hospitalization)
  Sender: FDA-Public Use
  Company Number: JP-JNJFOC-20061202933

PATIENT
  Sex: Female
  Weight: 54 kg

DRUGS (16)
  1. REMICADE [Suspect]
     Route: 042
  2. REMICADE [Suspect]
     Indication: RHEUMATOID ARTHRITIS
     Route: 042
  3. RHEUMATREX [Suspect]
     Dosage: 8MG/W
     Route: 048
  4. RHEUMATREX [Suspect]
     Indication: RHEUMATOID ARTHRITIS
     Dosage: 4MG/W
     Route: 048
  5. PREDONINE [Suspect]
     Indication: RHEUMATOID ARTHRITIS
     Route: 048
  6. LOXONIN [Suspect]
     Indication: DRUG USE FOR UNKNOWN INDICATION
     Route: 048
  7. CLARITHROMYCIN [Concomitant]
     Indication: RHEUMATOID ARTHRITIS
     Route: 048
  8. FOSAMAC [Concomitant]
     Indication: RHEUMATOID ARTHRITIS
     Route: 048
  9. SELBEX [Concomitant]
     Indication: RHEUMATOID ARTHRITIS
     Route: 048
  10. JUVELA N [Concomitant]
     Indication: RHEUMATOID ARTHRITIS
     Route: 048
  11. VITAMEDIN [Concomitant]
     Indication: RHEUMATOID ARTHRITIS
     Route: 048
  12. FOLIAMIN [Concomitant]
     Indication: RHEUMATOID ARTHRITIS
     Dosage: 5MG/W
     Route: 048
  13. RED BLOOD CELLS [Concomitant]
     Indication: HAEMATOCHEZIA
     Route: 042
  14. RED BLOOD CELLS [Concomitant]
     Indication: ANAEMIA
     Route: 042
  15. ANTIBIOTICS [Concomitant]
     Indication: HAEMATOCHEZIA
  16. ANTIBIOTICS [Concomitant]
     Indication: ANAEMIA

REACTIONS (1)
  - CYTOMEGALOVIRUS ENTEROCOLITIS [None]
